FAERS Safety Report 5808739-8 (Version None)
Quarter: 2008Q3

REPORT INFORMATION
  Report Type: 
  Country: None (occurrence: None)
  Receive Date: 20080702
  Receipt Date: 20080430
  Transmission Date: 20090109
  Serious: Yes (Other)
  Sender: FDA-Public Use
  Company Number: US-WYE-H03899208

PATIENT
  Sex: Female

DRUGS (3)
  1. ADVIL LIQUI-GELS [Suspect]
     Indication: BACK PAIN
     Dosage: 1 CAPLET DAILY, ORAL
     Route: 048
     Dates: start: 20080429, end: 20080429
  2. GLIPIZIDE [Concomitant]
  3. TENORMIN [Concomitant]

REACTIONS (2)
  - CONDITION AGGRAVATED [None]
  - HYPERTENSION [None]
